FAERS Safety Report 15983381 (Version 2)
Quarter: 2021Q3

REPORT INFORMATION
  Report Type: Spontaneous
  Country: AU (occurrence: AU)
  Receive Date: 20190220
  Receipt Date: 20210805
  Transmission Date: 20211014
  Serious: Yes (Other)
  Sender: FDA-Public Use
  Company Number: AU-ROCHE-2202172

PATIENT
  Sex: Male
  Weight: 92 kg

DRUGS (10)
  1. CARBOPLATIN. [Suspect]
     Active Substance: CARBOPLATIN
     Indication: LUNG ADENOCARCINOMA
     Route: 065
     Dates: start: 201809
  2. ATENOLOL. [Suspect]
     Active Substance: ATENOLOL
     Indication: ATRIAL FIBRILLATION
     Route: 065
  3. DICLOFENAC [Concomitant]
     Active Substance: DICLOFENAC
  4. TEMAZEPAM. [Concomitant]
     Active Substance: TEMAZEPAM
     Dosage: NOCTE PRN
  5. COLOXYL TABLETS [Concomitant]
     Dosage: NOCTE PRN
  6. MS CONTIN [Concomitant]
     Active Substance: MORPHINE SULFATE
  7. TECENTRIQ [Suspect]
     Active Substance: ATEZOLIZUMAB
     Indication: LUNG ADENOCARCINOMA
     Route: 042
     Dates: start: 201809
  8. PACLITAXEL. [Suspect]
     Active Substance: PACLITAXEL
     Indication: LUNG ADENOCARCINOMA
     Route: 065
     Dates: start: 201809
  9. AVASTIN [Suspect]
     Active Substance: BEVACIZUMAB
     Indication: LUNG ADENOCARCINOMA
     Dosage: 15MG/KG?STRENGTH: 25 MG/ML (INJECTION)?DURATION OF TRATMENT: 6 MONTHS
     Route: 042
     Dates: start: 201809
  10. ENDEP [Concomitant]
     Active Substance: AMITRIPTYLINE HYDROCHLORIDE
     Dosage: NOCTE

REACTIONS (4)
  - Off label use [Unknown]
  - Bradycardia [Unknown]
  - Fatigue [Unknown]
  - Proteinuria [Unknown]
